FAERS Safety Report 9011225 (Version 3)
Quarter: 2013Q1

REPORT INFORMATION
  Report Type: Spontaneous
  Country: US (occurrence: US)
  Receive Date: 20130109
  Receipt Date: 20130304
  Transmission Date: 20140127
  Serious: No
  Sender: FDA-Public Use
  Company Number: US-BIOGENIDEC-2012BI064903

PATIENT
  Age: 57 Year
  Sex: Female

DRUGS (3)
  1. AVONEX [Suspect]
     Indication: MULTIPLE SCLEROSIS
     Route: 030
     Dates: start: 20121130
  2. AVONEX [Suspect]
     Indication: MULTIPLE SCLEROSIS
     Route: 030
     Dates: start: 20121221
  3. AVONEX [Suspect]
     Indication: MULTIPLE SCLEROSIS
     Route: 030
     Dates: end: 20130131

REACTIONS (14)
  - Lethargy [Not Recovered/Not Resolved]
  - General symptom [Recovered/Resolved]
  - Drug dose omission [Unknown]
  - Salivary hypersecretion [Not Recovered/Not Resolved]
  - Fear [Unknown]
  - Abdominal pain [Unknown]
  - Psychiatric symptom [Unknown]
  - Asthenia [Recovered/Resolved]
  - Depressed mood [Recovered/Resolved]
  - Anxiety [Not Recovered/Not Resolved]
  - Musculoskeletal stiffness [Unknown]
  - Influenza like illness [Not Recovered/Not Resolved]
  - Malaise [Recovered/Resolved]
  - Muscle spasms [Recovered/Resolved]
